FAERS Safety Report 17952269 (Version 1)
Quarter: 2020Q2

REPORT INFORMATION
  Report Type: Spontaneous
  Country: KR (occurrence: KR)
  Receive Date: 20200626
  Receipt Date: 20200626
  Transmission Date: 20200714
  Serious: Yes (Other)
  Sender: FDA-Public Use
  Company Number: KR-ACTELION-A-CH2020-206275

PATIENT
  Age: 24 Year
  Sex: Male

DRUGS (2)
  1. OPSUMIT [Suspect]
     Active Substance: MACITENTAN
     Indication: PULMONARY ARTERIAL HYPERTENSION
     Dosage: UNK
     Route: 048
     Dates: start: 20180119
  2. SILDENAFIL. [Suspect]
     Active Substance: SILDENAFIL
     Indication: PULMONARY ARTERIAL HYPERTENSION
     Dosage: UNK
     Route: 065

REACTIONS (8)
  - Pulmonary arterial hypertension [Recovered/Resolved]
  - Atrial flutter [Recovered/Resolved]
  - Pulmonary arterial pressure increased [Recovered/Resolved]
  - Polycythaemia [Recovered/Resolved]
  - Herpes zoster [Recovered/Resolved]
  - Condition aggravated [Recovered/Resolved]
  - Cardiac ablation [Unknown]
  - Phlebotomy [Unknown]

NARRATIVE: CASE EVENT DATE: 20181127
